FAERS Safety Report 18992581 (Version 1)
Quarter: 2021Q1

REPORT INFORMATION
  Report Type: Spontaneous
  Country: FR (occurrence: FR)
  Receive Date: 20210310
  Receipt Date: 20210310
  Transmission Date: 20210420
  Serious: Yes (Other)
  Sender: FDA-Public Use
  Company Number: FR-ASTRAZENECA-2021A071205

PATIENT
  Sex: Male

DRUGS (5)
  1. OSIMERTINIB. [Suspect]
     Active Substance: OSIMERTINIB
     Dosage: 80.0MG UNKNOWN
     Route: 048
  2. LIPANOR [Concomitant]
     Active Substance: CIPROFIBRATE
  3. PERMIXON [Concomitant]
     Active Substance: HERBALS\SAW PALMETTO
  4. INEXIUM [Concomitant]
     Active Substance: ESOMEPRAZOLE
  5. OSIMERTINIB. [Suspect]
     Active Substance: OSIMERTINIB
     Dosage: 120.0MG UNKNOWN
     Route: 048

REACTIONS (3)
  - Off label use [Not Recovered/Not Resolved]
  - Drug ineffective [Unknown]
  - Disease progression [Not Recovered/Not Resolved]
